FAERS Safety Report 14702727 (Version 3)
Quarter: 2018Q3

REPORT INFORMATION
  Report Type: Report from Study
  Country: US (occurrence: US)
  Receive Date: 20180402
  Receipt Date: 20180705
  Transmission Date: 20181010
  Serious: Yes (Hospitalization, Other)
  Sender: FDA-Public Use
  Company Number: US-ALEXION PHARMACEUTICALS INC.-A201803424

PATIENT
  Age: 4 Year
  Sex: Male
  Weight: 23.7 kg

DRUGS (10)
  1. SOLIRIS [Suspect]
     Active Substance: ECULIZUMAB
     Indication: ATYPICAL HAEMOLYTIC URAEMIC SYNDROME
     Dosage: 300 MG, Q2W
     Route: 042
     Dates: start: 20170101, end: 20180228
  2. BAG BALM [Concomitant]
     Active Substance: OXYQUINOLINE SULFATE
     Indication: PRODUCT USED FOR UNKNOWN INDICATION
     Dosage: APPLY TOPICALLY, QID AS NEEDED
     Route: 061
  3. MULTIVITAMINS [Concomitant]
     Active Substance: VITAMINS
     Indication: PRODUCT USED FOR UNKNOWN INDICATION
     Dosage: 1 TAB QD
     Route: 048
  4. ZYRTEC [Concomitant]
     Active Substance: CETIRIZINE HYDROCHLORIDE
     Indication: PRODUCT USED FOR UNKNOWN INDICATION
     Dosage: 2.5 MG, QD
     Route: 048
  5. PEPCID [Concomitant]
     Active Substance: FAMOTIDINE
     Indication: PRODUCT USED FOR UNKNOWN INDICATION
     Dosage: 8 MG, BID
     Route: 048
  6. SOLIRIS [Suspect]
     Active Substance: ECULIZUMAB
     Dosage: 300 MG, Q2W
     Route: 042
     Dates: start: 20170109, end: 20180228
  7. EMLA [Concomitant]
     Active Substance: LIDOCAINE\PRILOCAINE
     Indication: PRODUCT USED FOR UNKNOWN INDICATION
     Dosage: APPLY TOPICALLY, Q2W
     Route: 061
  8. SINGULAIR [Concomitant]
     Active Substance: MONTELUKAST SODIUM
     Indication: PRODUCT USED FOR UNKNOWN INDICATION
     Dosage: 4 MG, QD
     Route: 048
  9. MIRALAX [Concomitant]
     Active Substance: POLYETHYLENE GLYCOL 3350
     Indication: PRODUCT USED FOR UNKNOWN INDICATION
     Dosage: 17 G BY MOUTH OD; 3 TEASPOON BY MOUTH OD
     Route: 048
  10. AMOXIL                             /00249601/ [Concomitant]
     Active Substance: AMOXICILLIN
     Indication: PRODUCT USED FOR UNKNOWN INDICATION
     Dosage: 4 ML, BID
     Route: 048

REACTIONS (15)
  - Rhinovirus infection [Recovering/Resolving]
  - Blood creatinine decreased [Unknown]
  - Normochromic normocytic anaemia [Unknown]
  - Haemoglobin decreased [Unknown]
  - Diarrhoea [Unknown]
  - Tachycardia [Unknown]
  - Eye swelling [Recovered/Resolved]
  - Bronchospasm [Recovering/Resolving]
  - Vasculitis [Unknown]
  - Abdominal pain [Recovered/Resolved]
  - Platelet count decreased [Recovered/Resolved]
  - Corona virus infection [Unknown]
  - Nephrotic syndrome [Recovered/Resolved]
  - Vomiting [Unknown]
  - Fatigue [Unknown]

NARRATIVE: CASE EVENT DATE: 20170920
